FAERS Safety Report 4832455-2 (Version None)
Quarter: 2005Q4

REPORT INFORMATION
  Report Type: 
  Country: None (occurrence: None)
  Receive Date: 20051117
  Receipt Date: 20051111
  Transmission Date: 20060501
  Serious: Yes (Hospitalization)
  Sender: FDA-Public Use
  Company Number: 219450

PATIENT
  Age: 63 Year
  Sex: Female

DRUGS (2)
  1. ERLOTINIB(ERLOTINIB) TABLET [Suspect]
     Indication: NON-SMALL CELL LUNG CANCER
     Dosage: 150 MG, QD
     Dates: start: 20051108
  2. AVASTIN [Suspect]
     Indication: NON-SMALL CELL LUNG CANCER
     Dosage: 866 MG,
     Dates: start: 20051019

REACTIONS (2)
  - COMPRESSION FRACTURE [None]
  - DEHYDRATION [None]
